FAERS Safety Report 4753480-6 (Version None)
Quarter: 2005Q3

REPORT INFORMATION
  Report Type: 
  Country: None (occurrence: None)
  Receive Date: 20050826
  Receipt Date: 20050823
  Transmission Date: 20060218
  Serious: Yes (Death)
  Sender: FDA-Public Use
  Company Number: 2005UW12487

PATIENT
  Sex: Male

DRUGS (1)
  1. TOPROL-XL [Suspect]
     Route: 048

REACTIONS (5)
  - DEATH [None]
  - ILL-DEFINED DISORDER [None]
  - NIGHTMARE [None]
  - PEPTIC ULCER [None]
  - THROMBOSIS [None]
